FAERS Safety Report 7486330-8 (Version None)
Quarter: 2011Q2

REPORT INFORMATION
  Report Type: 
  Country: None (occurrence: None)
  Receive Date: 20110517
  Receipt Date: 20110509
  Transmission Date: 20111010
  Serious: Yes (Hospitalization)
  Sender: FDA-Public Use
  Company Number: PHHY2010IT88171

PATIENT
  Age: 47 Year
  Sex: Male

DRUGS (1)
  1. METFORMIN HCL [Suspect]
     Indication: TYPE 2 DIABETES MELLITUS
     Dosage: UNK UKN, UNK

REACTIONS (27)
  - DRUG LEVEL INCREASED [None]
  - HYPOGLYCAEMIA [None]
  - CARDIAC ARREST [None]
  - GENERAL PHYSICAL CONDITION ABNORMAL [None]
  - DEPRESSION [None]
  - BLOOD UREA INCREASED [None]
  - VOMITING [None]
  - AGITATION [None]
  - HYPERVENTILATION [None]
  - SINUS TACHYCARDIA [None]
  - RENAL FAILURE [None]
  - DYSPNOEA [None]
  - METABOLIC ACIDOSIS [None]
  - LACTIC ACIDOSIS [None]
  - DEHYDRATION [None]
  - RESPIRATORY DISORDER [None]
  - BLOOD CREATININE INCREASED [None]
  - URINE OUTPUT DECREASED [None]
  - BRADYCARDIA [None]
  - BLOOD PRESSURE DECREASED [None]
  - BUNDLE BRANCH BLOCK RIGHT [None]
  - BLOOD LACTIC ACID INCREASED [None]
  - DIARRHOEA [None]
  - CONFUSIONAL STATE [None]
  - BLOOD PH DECREASED [None]
  - PCO2 DECREASED [None]
  - TOXICITY TO VARIOUS AGENTS [None]
